FAERS Safety Report 21989889 (Version 1)
Quarter: 2023Q1

REPORT INFORMATION
  Report Type: Spontaneous
  Country: US (occurrence: US)
  Receive Date: 20230214
  Receipt Date: 20230214
  Transmission Date: 20230417
  Serious: Yes (Other)
  Sender: FDA-Public Use
  Company Number: US-OTSUKA-2023_003630

PATIENT
  Age: 22 Year
  Sex: Female

DRUGS (1)
  1. REXULTI [Suspect]
     Active Substance: BREXPIPRAZOLE
     Indication: Depression
     Dosage: 2 MG
     Route: 048
     Dates: end: 20230126

REACTIONS (4)
  - Oligohydramnios [Unknown]
  - Gastrointestinal disorder [Unknown]
  - Anaemia [Unknown]
  - Maternal exposure during pregnancy [Unknown]
